FAERS Safety Report 16176344 (Version 1)
Quarter: 2019Q2

REPORT INFORMATION
  Report Type: Spontaneous
  Country: US (occurrence: US)
  Receive Date: 20190409
  Receipt Date: 20190409
  Transmission Date: 20190711
  Serious: No
  Sender: FDA-Public Use
  Company Number: US-SA-2019SA097880

PATIENT
  Sex: Male

DRUGS (14)
  1. MELOXICAM. [Concomitant]
     Active Substance: MELOXICAM
  2. NITROGLYCERIN. [Concomitant]
     Active Substance: NITROGLYCERIN
  3. EZETIMIBE. [Concomitant]
     Active Substance: EZETIMIBE
  4. PRALUENT [Suspect]
     Active Substance: ALIROCUMAB
     Indication: TYPE IIA HYPERLIPIDAEMIA
     Dosage: 75 MG
     Route: 058
     Dates: start: 20180801
  5. LISINOPRIL. [Concomitant]
     Active Substance: LISINOPRIL
  6. PRALUENT [Suspect]
     Active Substance: ALIROCUMAB
     Dosage: 150 UNK
     Dates: start: 201903
  7. ESOMEPRAZOLE MAGNESIUM. [Concomitant]
     Active Substance: ESOMEPRAZOLE MAGNESIUM
  8. MONTELUKAST SODIUM. [Concomitant]
     Active Substance: MONTELUKAST SODIUM
  9. ASPIRIN EC [Concomitant]
     Active Substance: ASPIRIN
  10. PRESERVISION AREDS [Concomitant]
     Active Substance: MINERALS\VITAMINS
  11. VITAMIN D3 [Concomitant]
     Active Substance: CHOLECALCIFEROL
     Dosage: UNK
  12. FENOFIBRIC ACID. [Concomitant]
     Active Substance: FENOFIBRIC ACID
  13. TOPROL XL [Concomitant]
     Active Substance: METOPROLOL SUCCINATE
  14. ROSUVASTATIN CALCIUM. [Concomitant]
     Active Substance: ROSUVASTATIN CALCIUM

REACTIONS (1)
  - Drug ineffective [Unknown]
